FAERS Safety Report 8389410 (Version 3)
Quarter: 2013Q2

REPORT INFORMATION
  Report Type: Spontaneous
  Country: US (occurrence: None)
  Receive Date: 20111221
  Receipt Date: 20121227
  Transmission Date: 20140414
  Serious: Yes (Hospitalization)
  Sender: FDA-Public Use
  Company Number: PHEH2010US00780

PATIENT
  Age: 27 Year
  Sex: Female
  Weight: 80.7 kg

DRUGS (2)
  1. EXJADE (*CGP 72670*) UNKNOWN [Suspect]
     Indication: SICKLE CELL ANAEMIA
     Dosage: 2500 MG DAILY, ORAL
     Route: 048
     Dates: start: 20071219
  2. EXJADE (*CGP 72670*) UNKNOWN [Suspect]
     Indication: IRON OVERLOAD
     Dosage: 2500 MG DAILY, ORAL
     Route: 048
     Dates: start: 20071219

REACTIONS (1)
  - SICKLE CELL ANAEMIA WITH CRISIS [None]
